FAERS Safety Report 12394996 (Version 1)
Quarter: 2016Q2

REPORT INFORMATION
  Report Type: Spontaneous
  Country: US (occurrence: US)
  Receive Date: 20160523
  Receipt Date: 20160523
  Transmission Date: 20160815
  Serious: No
  Sender: FDA-Public Use
  Company Number: US-ALLERGAN-1638195US

PATIENT
  Age: 58 Year
  Sex: Female

DRUGS (1)
  1. KYBELLA [Suspect]
     Active Substance: DEOXYCHOLIC ACID
     Indication: PRODUCT USED FOR UNKNOWN INDICATION
     Dosage: UNK, SINGLE
     Route: 030
     Dates: start: 201602, end: 201602

REACTIONS (3)
  - Incorrect route of drug administration [Unknown]
  - Nerve injury [Not Recovered/Not Resolved]
  - Facial paralysis [Not Recovered/Not Resolved]
